FAERS Safety Report 9795522 (Version 1)
Quarter: 2014Q1

REPORT INFORMATION
  Report Type: Spontaneous
  Country: US (occurrence: US)
  Receive Date: 20140103
  Receipt Date: 20140103
  Transmission Date: 20141002
  Serious: No
  Sender: FDA-Public Use
  Company Number: US-009507513-1401USA000357

PATIENT
  Age: 48 Year
  Sex: Female

DRUGS (4)
  1. CLARITIN-D-24 [Suspect]
     Indication: MALAISE
     Dosage: UNK, UNKNOWN
     Route: 048
  2. CLARITIN-D-24 [Suspect]
     Indication: RESPIRATORY TRACT CONGESTION
  3. CLARITIN-D-24 [Suspect]
     Indication: DYSPNOEA
  4. CLARITIN-D-24 [Suspect]
     Indication: HYPERSENSITIVITY

REACTIONS (3)
  - Drug effect delayed [Unknown]
  - Drug effect decreased [Unknown]
  - Drug ineffective [Unknown]
